FAERS Safety Report 6713591-2 (Version None)
Quarter: 2010Q2

REPORT INFORMATION
  Report Type: 
  Country: None (occurrence: None)
  Receive Date: 20100506
  Receipt Date: 20100430
  Transmission Date: 20101027
  Serious: Yes (Other)
  Sender: FDA-Public Use
  Company Number: CA-JNJFOC-20100404290

PATIENT
  Sex: Male

DRUGS (9)
  1. INVEGA [Suspect]
     Indication: DRUG USE FOR UNKNOWN INDICATION
     Route: 048
  2. BUPROPION HCL [Concomitant]
     Indication: SMOKING CESSATION THERAPY
  3. BUPROPION HCL [Concomitant]
     Indication: DEPRESSION
  4. CLONAZEPAM [Concomitant]
     Indication: ANXIETY
  5. ZANTAC [Concomitant]
     Indication: GASTROOESOPHAGEAL REFLUX DISEASE
  6. SPIRIVA [Concomitant]
     Indication: CHRONIC OBSTRUCTIVE PULMONARY DISEASE
  7. ADVAIR DISKUS 100/50 [Concomitant]
     Indication: CHRONIC OBSTRUCTIVE PULMONARY DISEASE
  8. VENTOLIN [Concomitant]
     Indication: CHRONIC OBSTRUCTIVE PULMONARY DISEASE
  9. SINGULAIR [Concomitant]
     Indication: CHRONIC OBSTRUCTIVE PULMONARY DISEASE

REACTIONS (8)
  - CHEST DISCOMFORT [None]
  - CHEST PAIN [None]
  - COLLAPSE OF LUNG [None]
  - CONTUSION [None]
  - HYPERSENSITIVITY [None]
  - SPUTUM ABNORMAL [None]
  - SWOLLEN TONGUE [None]
  - TONGUE BLISTERING [None]
